FAERS Safety Report 12437747 (Version 1)
Quarter: 2016Q2

REPORT INFORMATION
  Report Type: Report from Study
  Country: CO (occurrence: CO)
  Receive Date: 20160606
  Receipt Date: 20160606
  Transmission Date: 20160815
  Serious: Yes (Hospitalization, Other)
  Sender: FDA-Public Use
  Company Number: CO-AMGEN-COLSL2016045088

PATIENT
  Age: 23 Year
  Sex: Male

DRUGS (2)
  1. MIMPARA [Suspect]
     Active Substance: CINACALCET HYDROCHLORIDE
     Indication: CHRONIC KIDNEY DISEASE
  2. MIMPARA [Suspect]
     Active Substance: CINACALCET HYDROCHLORIDE
     Indication: HYPERPARATHYROIDISM SECONDARY
     Dosage: 60 MG, QD
     Route: 048
     Dates: start: 20140716

REACTIONS (2)
  - Blood parathyroid hormone increased [Not Recovered/Not Resolved]
  - Central nervous system infection [Recovering/Resolving]

NARRATIVE: CASE EVENT DATE: 201603
